FAERS Safety Report 6292942-X (Version None)
Quarter: 2009Q3

REPORT INFORMATION
  Report Type: 
  Country: None (occurrence: None)
  Receive Date: 20090731
  Receipt Date: 20090725
  Transmission Date: 20100115
  Serious: Yes (Disabling)
  Sender: FDA-Public Use
  Company Number: IR-GENENTECH-287522

PATIENT
  Age: 55 Year
  Sex: Female

DRUGS (3)
  1. AVASTIN [Suspect]
     Indication: BREAST CANCER
     Dosage: UNK
     Route: 042
  2. TAXOTERE [Concomitant]
     Indication: DRUG USE FOR UNKNOWN INDICATION
     Dosage: UNK
  3. GLIBENCLAMIDE [Concomitant]
     Indication: DRUG USE FOR UNKNOWN INDICATION
     Dosage: UNK

REACTIONS (1)
  - GANGRENE [None]
